FAERS Safety Report 7472287-2 (Version None)
Quarter: 2011Q2

REPORT INFORMATION
  Report Type: 
  Country: None (occurrence: None)
  Receive Date: 20110511
  Receipt Date: 20110422
  Transmission Date: 20111010
  Serious: No
  Sender: FDA-Public Use
  Company Number: US-B.I. PHARMACEUTICALS,INC./RIDGEFIELD-2011-BP-08770BP

PATIENT
  Sex: Female

DRUGS (30)
  1. MUSINEX [Concomitant]
  2. MIACALCIUM [Concomitant]
  3. OSCAL [Concomitant]
  4. BENICAR HCT [Concomitant]
     Indication: HYPERTENSION
     Route: 048
  5. LASIX [Concomitant]
     Indication: FLUID RETENTION
     Dosage: 40 MG
     Route: 048
  6. HYDROCODONE BITARTRATE AND ACETAMINOPHEN [Concomitant]
  7. VIT B12 [Concomitant]
     Indication: VITAMIN B12 DEFICIENCY
  8. NEURONTIN [Concomitant]
     Indication: LIMB INJURY
     Dosage: 300 MG
     Route: 048
  9. SIMVASTATIN [Concomitant]
     Indication: BLOOD CHOLESTEROL INCREASED
     Dosage: 20 MG
     Route: 048
  10. POTASSIUM [Concomitant]
  11. IRRITABLE BOWEL SYNDROME CAPSULE [Concomitant]
  12. RESTASIS [Concomitant]
  13. VOLTAREN [Concomitant]
  14. PRADAXA [Suspect]
     Indication: PROTEIN S DEFICIENCY
     Dosage: 300 MG
     Route: 048
     Dates: start: 20110311
  15. FUROSEMIDE [Concomitant]
     Dosage: 40 MG
  16. LOMOTIL [Concomitant]
  17. PRADAXA [Suspect]
     Indication: TRANSIENT ISCHAEMIC ATTACK
  18. LEVOTHYROXINE SODIUM [Concomitant]
     Indication: THYROID DISORDER
     Dosage: 50 MCG
     Route: 048
  19. ZOLOFT [Concomitant]
     Indication: DEPRESSION
     Dosage: 150 MG
     Route: 048
  20. AMITRIPTYLINE HCL [Concomitant]
     Indication: MIGRAINE
     Dosage: 25 MG
     Route: 048
  21. ZOFRAN [Concomitant]
     Dosage: 4 MG
  22. ALPHAGAN [Concomitant]
  23. COMBIVENT [Concomitant]
     Route: 055
  24. SUMATRIPTAN SUCCINAT [Concomitant]
     Dosage: 100 MG
  25. PRADAXA [Suspect]
     Indication: CEREBROVASCULAR ACCIDENT
  26. AGGRENOX [Concomitant]
  27. NEXIUM [Concomitant]
     Indication: GASTROOESOPHAGEAL REFLUX DISEASE
     Dosage: 40 MG
     Route: 048
  28. LUTEIN [Concomitant]
     Dosage: 6 MG
  29. APAP/BUTALBITAL/CAFF [Concomitant]
     Indication: HEADACHE
  30. FLEXERIL [Concomitant]
     Dosage: 10 MG

REACTIONS (1)
  - ASTHENIA [None]
